FAERS Safety Report 12098008 (Version 2)
Quarter: 2016Q1

REPORT INFORMATION
  Report Type: Report from Study
  Country: AU (occurrence: AU)
  Receive Date: 20160221
  Receipt Date: 20160315
  Transmission Date: 20160526
  Serious: Yes (Other)
  Sender: FDA-Public Use
  Company Number: AU-ROCHE-1709471

PATIENT
  Age: 38 Year
  Sex: Female

DRUGS (5)
  1. NEXIUM [Concomitant]
     Active Substance: ESOMEPRAZOLE MAGNESIUM
     Dosage: TABLETS 20 MG, ONGOING
     Route: 065
     Dates: start: 20150622
  2. HUMIRA [Concomitant]
     Active Substance: ADALIMUMAB
     Indication: RHEUMATOID ARTHRITIS
     Dosage: PREFILLED PEN 40MG/0.8ML, ONGOING
     Route: 058
     Dates: start: 20160209
  3. RAMIPRIL. [Concomitant]
     Active Substance: RAMIPRIL
     Dosage: CAPSULES 2.5 MG, ONGOING
     Route: 065
     Dates: start: 20151013
  4. ACTEMRA [Suspect]
     Active Substance: TOCILIZUMAB
     Indication: RHEUMATOID ARTHRITIS
     Route: 042
     Dates: start: 20151013, end: 20160201
  5. ROSUVASTATIN [Concomitant]
     Active Substance: ROSUVASTATIN
     Dosage: TABLETS 20 MG, ONGOING
     Route: 065
     Dates: start: 20151013

REACTIONS (1)
  - Hepatotoxicity [Unknown]

NARRATIVE: CASE EVENT DATE: 20160209
